FAERS Safety Report 5594623-4 (Version None)
Quarter: 2008Q1

REPORT INFORMATION
  Report Type: 
  Country: None (occurrence: None)
  Receive Date: 20080117
  Receipt Date: 20071028
  Transmission Date: 20080703
  Serious: No
  Sender: FDA-Public Use
  Company Number: US-ABBOTT-07P-163-0422760-00

PATIENT

DRUGS (2)
  1. TRICOR [Suspect]
     Indication: BLOOD TRIGLYCERIDES INCREASED
     Dates: start: 20070401
  2. TRICOR [Suspect]
     Dosage: DOSE CHANGE

REACTIONS (4)
  - ABDOMINAL PAIN [None]
  - ADVERSE DRUG REACTION [None]
  - BACK PAIN [None]
  - HEADACHE [None]
